FAERS Safety Report 22267408 (Version 1)
Quarter: 2023Q2

REPORT INFORMATION
  Report Type: Spontaneous
  Country: US (occurrence: US)
  Receive Date: 20230428
  Receipt Date: 20230428
  Transmission Date: 20230721
  Serious: No
  Sender: FDA-Public Use
  Company Number: US-Teikoku Pharma USA-TPU2023-00197

PATIENT
  Sex: Male

DRUGS (2)
  1. LIDOCAINE PATCH [Suspect]
     Active Substance: LIDOCAINE
     Indication: Arthralgia
     Route: 061
     Dates: start: 2010
  2. LIDOCAINE PATCH [Suspect]
     Active Substance: LIDOCAINE
     Route: 061
     Dates: start: 202303

REACTIONS (1)
  - Product dispensing error [Unknown]
